FAERS Safety Report 16929438 (Version 1)
Quarter: 2019Q4

REPORT INFORMATION
  Report Type: Spontaneous
  Country: PL (occurrence: PL)
  Receive Date: 20191017
  Receipt Date: 20191017
  Transmission Date: 20200122
  Serious: Yes (Hospitalization, Other)
  Sender: FDA-Public Use
  Company Number: PL-ACCORD-157883

PATIENT
  Age: 75 Year
  Sex: Female

DRUGS (2)
  1. METHOTREXATE. [Suspect]
     Active Substance: METHOTREXATE
     Indication: RHEUMATOID ARTHRITIS
     Dosage: USE THE DRUG - BY MISTAKE DAILY
  2. FILGRASTIM [Concomitant]
     Active Substance: FILGRASTIM
     Indication: NEUTROPENIA

REACTIONS (5)
  - Leukopenia [Unknown]
  - Normocytic anaemia [Unknown]
  - Inappropriate schedule of product administration [Unknown]
  - Neutropenia [Unknown]
  - Skin lesion [Recovered/Resolved]
